FAERS Safety Report 10230882 (Version 1)
Quarter: 2014Q2

REPORT INFORMATION
  Report Type: Spontaneous
  Country: US (occurrence: US)
  Receive Date: 20140611
  Receipt Date: 20140611
  Transmission Date: 20141212
  Serious: No
  Sender: FDA-Public Use
  Company Number: US-BAYER-2014-082917

PATIENT
  Age: 59 Year
  Sex: Female

DRUGS (1)
  1. CLIMARA [Suspect]
     Indication: HORMONE REPLACEMENT THERAPY
     Dosage: UNK
     Dates: start: 201309

REACTIONS (4)
  - Application site erythema [Recovered/Resolved]
  - Application site rash [Recovered/Resolved]
  - Application site urticaria [Recovered/Resolved]
  - Application site scab [Recovered/Resolved]
